FAERS Safety Report 8499463-4 (Version None)
Quarter: 2012Q3

REPORT INFORMATION
  Report Type: 
  Country: None (occurrence: None)
  Receive Date: 20120710
  Receipt Date: 20120702
  Transmission Date: 20120928
  Serious: Yes (Disabling, Other)
  Sender: FDA-Public Use
  Company Number: FR-JNJFOC-20120700728

PATIENT
  Sex: Male
  Weight: 85 kg

DRUGS (9)
  1. INTELENCE [Suspect]
     Indication: HIV INFECTION
     Route: 048
     Dates: start: 20090601
  2. RAMIPRIL [Concomitant]
     Route: 065
  3. ALLOPURINOL [Concomitant]
     Route: 065
  4. VITAMIN D [Concomitant]
     Route: 065
  5. BISOPROLOL FUMARATE [Concomitant]
     Route: 065
  6. PANTOPRAZOLE SODIUM [Interacting]
     Indication: OESOPHAGITIS
     Dosage: LONG TIME
     Route: 048
  7. LAMISIL [Concomitant]
     Route: 065
  8. ISENTRESS [Suspect]
     Indication: HIV INFECTION
     Route: 048
     Dates: start: 20090601
  9. EZETIMIBE [Concomitant]
     Route: 065

REACTIONS (2)
  - DRUG INTERACTION [None]
  - NEUROPATHY PERIPHERAL [None]
